FAERS Safety Report 6569264-2 (Version None)
Quarter: 2010Q1

REPORT INFORMATION
  Report Type: 
  Country: None (occurrence: None)
  Receive Date: 20100201
  Receipt Date: 20100201
  Transmission Date: 20100710
  Serious: No
  Sender: FDA-Public Use
  Company Number: None

PATIENT
  Sex: Female
  Weight: 72.1219 kg

DRUGS (1)
  1. FLUCONAZOLE [Suspect]
     Indication: FUNGAL INFECTION
     Dosage: 30 TABLET ONCE DAILY PO
     Route: 048
     Dates: start: 20100107, end: 20100122

REACTIONS (12)
  - ASTHENIA [None]
  - CANDIDIASIS [None]
  - DISCOMFORT [None]
  - EYE PAIN [None]
  - FEELING ABNORMAL [None]
  - FUNGAL INFECTION [None]
  - MUSCULAR WEAKNESS [None]
  - PARAESTHESIA ORAL [None]
  - PRODUCT SUBSTITUTION ISSUE [None]
  - TONGUE DISORDER [None]
  - VISION BLURRED [None]
  - VULVOVAGINAL PRURITUS [None]
